FAERS Safety Report 13446013 (Version 8)
Quarter: 2018Q2

REPORT INFORMATION
  Report Type: Report from Study
  Country: None (occurrence: US)
  Receive Date: 20170417
  Receipt Date: 20180627
  Transmission Date: 20180711
  Serious: Yes (Hospitalization, Other)
  Sender: FDA-Public Use
  Company Number: US-ABBVIE-17K-163-1940578-00

PATIENT
  Age: 67 Year
  Sex: Female
  Weight: 59.02 kg

DRUGS (10)
  1. HUMIRA [Suspect]
     Active Substance: ADALIMUMAB
     Indication: RHEUMATOID ARTHRITIS
     Route: 058
     Dates: end: 20170321
  2. SYNTHROID [Concomitant]
     Active Substance: LEVOTHYROXINE SODIUM
     Indication: HYPOTHYROIDISM
  3. HUMIRA [Suspect]
     Active Substance: ADALIMUMAB
     Route: 058
     Dates: start: 20170611, end: 20171019
  4. METHOCARBAMOL. [Concomitant]
     Active Substance: METHOCARBAMOL
     Indication: PRODUCT USED FOR UNKNOWN INDICATION
  5. HUMIRA [Suspect]
     Active Substance: ADALIMUMAB
     Route: 058
     Dates: start: 20171114, end: 201711
  6. HUMIRA [Suspect]
     Active Substance: ADALIMUMAB
     Route: 058
     Dates: start: 201704, end: 201705
  7. CELEBREX [Concomitant]
     Active Substance: CELECOXIB
     Indication: PRODUCT USED FOR UNKNOWN INDICATION
  8. HUMIRA [Suspect]
     Active Substance: ADALIMUMAB
     Route: 058
     Dates: start: 20171216, end: 2018
  9. SYNTHROID [Concomitant]
     Active Substance: LEVOTHYROXINE SODIUM
     Indication: AUTOIMMUNE THYROIDITIS
  10. FOSAMAX [Concomitant]
     Active Substance: ALENDRONATE SODIUM
     Indication: OSTEOPENIA

REACTIONS (19)
  - Localised infection [Recovered/Resolved]
  - Postoperative wound infection [Unknown]
  - Abdominal pain upper [Recovered/Resolved]
  - Post procedural discharge [Recovered/Resolved]
  - Volvulus [Recovered/Resolved]
  - Post procedural complication [Recovering/Resolving]
  - Intestinal obstruction [Unknown]
  - Post procedural infection [Unknown]
  - Bursitis [Recovered/Resolved]
  - Blister [Recovered/Resolved]
  - Peripheral swelling [Not Recovered/Not Resolved]
  - Hernia [Recovering/Resolving]
  - Rheumatoid arthritis [Recovered/Resolved]
  - Incision site erythema [Recovered/Resolved]
  - Weight decreased [Not Recovered/Not Resolved]
  - Incision site pain [Recovered/Resolved]
  - Procedural pain [Not Recovered/Not Resolved]
  - Back pain [Recovering/Resolving]
  - Rheumatoid arthritis [Unknown]

NARRATIVE: CASE EVENT DATE: 2017
